FAERS Safety Report 5702017-3 (Version None)
Quarter: 2008Q2

REPORT INFORMATION
  Report Type: 
  Country: None (occurrence: None)
  Receive Date: 20080411
  Receipt Date: 20080401
  Transmission Date: 20081010
  Serious: Yes (Other)
  Sender: FDA-Public Use
  Company Number: CA-WYE-H03386408

PATIENT
  Sex: Male
  Weight: 81 kg

DRUGS (4)
  1. BENEFIX [Suspect]
     Indication: FACTOR IX DEFICIENCY
     Route: 042
     Dates: start: 20070814
  2. CIPRO [Concomitant]
     Indication: INFECTION
  3. SULINDAC [Concomitant]
     Indication: INFECTION
  4. PERCOCET [Concomitant]

REACTIONS (2)
  - BACK PAIN [None]
  - TESTICULAR PAIN [None]
